FAERS Safety Report 15726200 (Version 1)
Quarter: 2018Q4

REPORT INFORMATION
  Report Type: Spontaneous
  Country: US (occurrence: US)
  Receive Date: 20181216
  Receipt Date: 20181216
  Transmission Date: 20190205
  Serious: Yes (Other)
  Sender: FDA-Public Use
  Company Number: US-SUPERNUS PHARMACEUTICALS, INC.-2018SUP00104

PATIENT
  Sex: Female
  Weight: 43.99 kg

DRUGS (6)
  1. CALCIUM [Concomitant]
     Active Substance: CALCIUM
  2. CITALOPRAM [Concomitant]
     Active Substance: CITALOPRAM HYDROBROMIDE
  3. LAMICTAL [Concomitant]
     Active Substance: LAMOTRIGINE
  4. FISH OIL [Concomitant]
     Active Substance: FISH OIL
  5. BABY ASPIRIN [Concomitant]
     Active Substance: ASPIRIN
     Dosage: UNK, 1X/DAY
  6. TROKENDI XR [Suspect]
     Active Substance: TOPIRAMATE
     Indication: FOCAL DYSCOGNITIVE SEIZURES
     Dosage: 100 MG, 3X/DAY
     Route: 048
     Dates: end: 20180328

REACTIONS (5)
  - Abdominal discomfort [Unknown]
  - Decreased appetite [Not Recovered/Not Resolved]
  - Off label use [Recovered/Resolved]
  - Weight decreased [Not Recovered/Not Resolved]
  - Headache [Unknown]
